FAERS Safety Report 13086055 (Version 1)
Quarter: 2017Q1

REPORT INFORMATION
  Report Type: Spontaneous
  Country: US (occurrence: US)
  Receive Date: 20170104
  Receipt Date: 20170104
  Transmission Date: 20170428
  Serious: Yes (Other)
  Sender: FDA-Public Use
  Company Number: US-CELGENEUS-USA-2016113569

PATIENT
  Age: 46 Year
  Sex: Male
  Weight: 88.53 kg

DRUGS (2)
  1. REVLIMID [Suspect]
     Active Substance: LENALIDOMIDE
     Indication: HODGKIN^S DISEASE
  2. REVLIMID [Suspect]
     Active Substance: LENALIDOMIDE
     Indication: PLASMA CELL MYELOMA
     Dosage: 25 MILLIGRAM
     Route: 048
     Dates: start: 20160119

REACTIONS (3)
  - Cough [Recovered/Resolved]
  - Hypersensitivity [Recovered/Resolved]
  - Respiratory tract infection [Unknown]

NARRATIVE: CASE EVENT DATE: 2016
